FAERS Safety Report 13817679 (Version 2)
Quarter: 2017Q3

REPORT INFORMATION
  Report Type: Spontaneous
  Country: US (occurrence: US)
  Receive Date: 20170731
  Receipt Date: 20170816
  Transmission Date: 20171127
  Serious: Yes (Hospitalization, Other)
  Sender: FDA-Public Use
  Company Number: US-SAOL THERAPEUTICS-2017SAO01262

PATIENT
  Sex: Male

DRUGS (7)
  1. BACLOFEN. [Suspect]
     Active Substance: BACLOFEN
     Indication: PAIN
     Dosage: 5.505 ?G, \DAY
  2. BACLOFEN. [Suspect]
     Active Substance: BACLOFEN
     Dosage: 5.505 ?G, \DAY
  3. BACLOFEN. [Suspect]
     Active Substance: BACLOFEN
     Indication: PAIN
     Dosage: 7.491 ?G, \DAY
  4. MORPHINE [Suspect]
     Active Substance: MORPHINE
     Dosage: 2.996 MG, \DAY
  5. MORPHINE [Suspect]
     Active Substance: MORPHINE
     Dosage: 2.752 MG, \DAY
  6. MORPHINE [Suspect]
     Active Substance: MORPHINE
     Dosage: 2.752 MG, \DAY
  7. MORPHINE [Suspect]
     Active Substance: MORPHINE
     Dosage: 0.5 MG, \DAY

REACTIONS (8)
  - Implant site scar [Unknown]
  - Hip arthroplasty [Unknown]
  - Device dislocation [Unknown]
  - Device malfunction [Not Recovered/Not Resolved]
  - Vertebral column mass [Unknown]
  - Implant site paraesthesia [Unknown]
  - Implant site pain [Not Recovered/Not Resolved]
  - Off label use [Unknown]

NARRATIVE: CASE EVENT DATE: 2017
